FAERS Safety Report 16693158 (Version 2)
Quarter: 2019Q3

REPORT INFORMATION
  Report Type: Spontaneous
  Country: ES (occurrence: ES)
  Receive Date: 20190812
  Receipt Date: 20190814
  Transmission Date: 20191004
  Serious: Yes (Life-Threatening, Hospitalization, Other)
  Sender: FDA-Public Use
  Company Number: ES-NAPPMUNDI-USA-2019-0147966

PATIENT
  Age: 36 Year
  Sex: Male

DRUGS (6)
  1. OXYCODONE HYDROCHLORIDE (SIMILAR TO NDA 22-272) [Suspect]
     Active Substance: OXYCODONE HYDROCHLORIDE
     Indication: SPINAL PAIN
     Dosage: 10 MG, DAILY
     Route: 048
  2. DIAZEPAM. [Concomitant]
     Active Substance: DIAZEPAM
     Dosage: 7.5 MG, IN TWO DAILY DOSES
  3. PREGABALIN. [Concomitant]
     Active Substance: PREGABALIN
     Indication: SPINAL PAIN
     Dosage: 75 MG, Q12H
     Route: 048
  4. NALOXONE W/OXYCODONE [Concomitant]
     Active Substance: NALOXONE HYDROCHLORIDE\OXYCODONE HYDROCHLORIDE
     Indication: SPINAL PAIN
     Dosage: 2.5/5 MG, Q12H
     Route: 048
  5. BACLOFEN. [Concomitant]
     Active Substance: BACLOFEN
     Indication: SPINAL PAIN
     Dosage: 5 MG, Q8H
     Route: 065
  6. DIAZEPAM. [Concomitant]
     Active Substance: DIAZEPAM
     Indication: SPINAL PAIN
     Dosage: 5 MG, Q8H
     Route: 048

REACTIONS (16)
  - Confusional state [Recovering/Resolving]
  - Psychotic disorder [Recovered/Resolved]
  - Urine abnormality [Unknown]
  - Dizziness [Recovering/Resolving]
  - Vomiting [Unknown]
  - Hypotension [Unknown]
  - Mental impairment [Recovering/Resolving]
  - Drug withdrawal syndrome [Recovered/Resolved]
  - Headache [Unknown]
  - Persecutory delusion [Recovering/Resolving]
  - Amnesia [Recovering/Resolving]
  - Dyspnoea [Unknown]
  - Gingival bleeding [Unknown]
  - Hallucination, olfactory [Recovering/Resolving]
  - Suicidal ideation [Recovering/Resolving]
  - Hallucination [Recovering/Resolving]
